FAERS Safety Report 24797263 (Version 1)
Quarter: 2025Q1

REPORT INFORMATION
  Report Type: Report from Study
  Country: IT (occurrence: IT)
  Receive Date: 20250102
  Receipt Date: 20250102
  Transmission Date: 20250409
  Serious: Yes (Other)
  Sender: JOHNSON AND JOHNSON
  Company Number: IT-JNJFOC-20241288440

PATIENT
  Age: 41 Year
  Sex: Male

DRUGS (2)
  1. SPRAVATO [Suspect]
     Active Substance: ESKETAMINE
     Indication: Depression
     Dosage: 3 PUFFS, TWO TIMES A MONTH
     Route: 045
  2. SPRAVATO [Suspect]
     Active Substance: ESKETAMINE
     Dosage: 3 PUFFS, TWO TIMES A WEEK
     Route: 045

REACTIONS (7)
  - Altered state of consciousness [Unknown]
  - Logorrhoea [Unknown]
  - Partner stress [Unknown]
  - Lack of empathy [Unknown]
  - Depressed mood [Unknown]
  - Psychomotor hyperactivity [Unknown]
  - Feeling abnormal [Unknown]
